FAERS Safety Report 12679737 (Version 2)
Quarter: 2016Q3

REPORT INFORMATION
  Report Type: Spontaneous
  Country: US (occurrence: US)
  Receive Date: 20160824
  Receipt Date: 20160908
  Transmission Date: 20161109
  Serious: No
  Sender: FDA-Public Use
  Company Number: US-009507513-1608USA004312

PATIENT
  Age: 38 Year
  Sex: Female

DRUGS (1)
  1. GANIRELIX ACETATE INJECTION [Suspect]
     Active Substance: GANIRELIX ACETATE
     Indication: IN VITRO FERTILISATION
     Dosage: 250 MICROGRAM, QD
     Route: 058
     Dates: start: 201606, end: 201607

REACTIONS (2)
  - Drug ineffective [Unknown]
  - Premature ovulation [Unknown]

NARRATIVE: CASE EVENT DATE: 2016
